FAERS Safety Report 4397854-4 (Version None)
Quarter: 2004Q2

REPORT INFORMATION
  Report Type: 
  Country: None (occurrence: None)
  Receive Date: 20040621
  Receipt Date: 20040407
  Transmission Date: 20050107
  Serious: Yes (Death)
  Sender: FDA-Public Use
  Company Number: USA-2004-0014412

PATIENT
  Age: 36 Year
  Sex: Male
  Weight: 101.6 kg

DRUGS (3)
  1. OXYCODONE HYDROCHLORIDE (SIMILAR TO NDS 20-553) (OXYCODONE HYDROCHLORI [Suspect]
     Dosage: UNK MG, UNK; UNKNOWN
     Route: 065
  2. HYDROCODONE BITARTRATE [Suspect]
     Dosage: UNK MG, UNK; UNKNOWN
     Route: 065
  3. DIAZEPAM [Suspect]
     Dosage: UNK MG, UNK; UNKNOWN
     Route: 065

REACTIONS (2)
  - ACCIDENTAL OVERDOSE [None]
  - MULTIPLE DRUG OVERDOSE [None]
